FAERS Safety Report 5078080-2 (Version None)
Quarter: 2006Q3

REPORT INFORMATION
  Report Type: 
  Country: None (occurrence: None)
  Receive Date: 20060720
  Receipt Date: 20060408
  Transmission Date: 20061208
  Serious: Yes (Life-Threatening, Hospitalization)
  Sender: FDA-Public Use
  Company Number: 2006MP000550

PATIENT
  Age: 54 Year
  Sex: Male

DRUGS (4)
  1. AGGRASTAT [Suspect]
     Dosage: IV
     Route: 042
     Dates: start: 20060406, end: 20060406
  2. FRAXIPARIN [Suspect]
     Dates: start: 20060406, end: 20060406
  3. PLAVIX [Suspect]
     Dates: start: 20060406, end: 20060406
  4. ASPIRIN [Suspect]
     Dates: start: 20060406, end: 20060406

REACTIONS (1)
  - THROMBOCYTOPENIA [None]
